FAERS Safety Report 13754062 (Version 1)
Quarter: 2017Q3

REPORT INFORMATION
  Report Type: Spontaneous
  Country: US (occurrence: US)
  Receive Date: 20170714
  Receipt Date: 20170714
  Transmission Date: 20171127
  Serious: Yes (Life-Threatening, Hospitalization, Disabling)
  Sender: FDA-Public Use
  Company Number: None

PATIENT
  Age: 32 Year
  Sex: Male
  Weight: 75 kg

DRUGS (4)
  1. MAGNESIUM [Concomitant]
     Active Substance: MAGNESIUM
  2. CIPRINOL 500 [Suspect]
     Active Substance: CIPROFLOXACIN
     Indication: MICTURITION DISORDER
     Dosage: ?          OTHER STRENGTH:MG;QUANTITY:1 TABLET(S);?
     Route: 048
  3. VITAMIN B [Concomitant]
     Active Substance: VITAMIN B
  4. MIRTAZAPIN [Concomitant]
     Active Substance: MIRTAZAPINE

REACTIONS (18)
  - Dizziness [None]
  - Mental impairment [None]
  - Limb discomfort [None]
  - Depression [None]
  - Dyspnoea [None]
  - Tension [None]
  - Sensory disturbance [None]
  - Arthropod bite [None]
  - Fatigue [None]
  - Infection [None]
  - Feeling abnormal [None]
  - Hyperacusis [None]
  - Gastric disorder [None]
  - Panic attack [None]
  - Confusional state [None]
  - Asthenia [None]
  - Anxiety [None]
  - Suicidal ideation [None]

NARRATIVE: CASE EVENT DATE: 20150107
